FAERS Safety Report 8248718-7 (Version None)
Quarter: 2012Q1

REPORT INFORMATION
  Report Type: 
  Country: None (occurrence: None)
  Receive Date: 20120331
  Receipt Date: 20120326
  Transmission Date: 20120608
  Serious: Yes (Other)
  Sender: FDA-Public Use
  Company Number: PHHY2011BR66686

PATIENT
  Sex: Male

DRUGS (2)
  1. CAPTOPRIL [Concomitant]
     Dosage: 12.5 MG, UNK
     Route: 048
  2. EXELON [Suspect]
     Indication: DEMENTIA ALZHEIMER'S TYPE
     Dosage: 1.5 MG, BID
     Route: 048

REACTIONS (11)
  - MALAISE [None]
  - AORTIC DILATATION [None]
  - DYSPEPSIA [None]
  - WRONG TECHNIQUE IN DRUG USAGE PROCESS [None]
  - SINUSITIS [None]
  - HALLUCINATION [None]
  - FEELING ABNORMAL [None]
  - DECREASED APPETITE [None]
  - PNEUMONIA [None]
  - HYPERSOMNIA [None]
  - VOMITING [None]
